FAERS Safety Report 6145366-X (Version None)
Quarter: 2009Q2

REPORT INFORMATION
  Report Type: 
  Country: None (occurrence: None)
  Receive Date: 20090402
  Receipt Date: 20090323
  Transmission Date: 20091009
  Serious: Yes (Other)
  Sender: FDA-Public Use
  Company Number: ZYD-09-AE-028

PATIENT
  Age: 46 Year
  Sex: Female

DRUGS (15)
  1. RIBAVIRIN (ZYDUS) [Suspect]
     Indication: HEPATITIS C
     Dosage: 1000MG, DAILY
     Dates: start: 20081208
  2. PEG-INTRON [Suspect]
     Indication: HEPATITIS C
     Dosage: 180, WEEKLY
     Dates: start: 20081208
  3. FEXOFENADATE [Concomitant]
  4. PROAIR HFA [Concomitant]
  5. TRAZODONE HCL [Concomitant]
  6. OMEPRAZOLE [Concomitant]
  7. BISOPROLOL FUMARATE [Concomitant]
  8. AMLODIPINE [Concomitant]
  9. BENAZEPRIL HYDROCHLORIDE [Concomitant]
  10. CALCIUM [Concomitant]
  11. ASPIRIN [Concomitant]
  12. NASONEX [Concomitant]
  13. BUSPIRONE HCL [Concomitant]
  14. TRAVATAN [Concomitant]
  15. ALENDRONATE SODIUM [Concomitant]

REACTIONS (15)
  - ABDOMINAL PAIN [None]
  - ASTHENIA [None]
  - BONE DISORDER [None]
  - CONSTIPATION [None]
  - DRUG HYPERSENSITIVITY [None]
  - EAR INFECTION [None]
  - FEELING OF BODY TEMPERATURE CHANGE [None]
  - HEADACHE [None]
  - MUSCULOSKELETAL PAIN [None]
  - NAUSEA [None]
  - OEDEMA PERIPHERAL [None]
  - PRURITUS GENERALISED [None]
  - SINUSITIS [None]
  - THROMBOSIS IN DEVICE [None]
  - VOMITING [None]
